FAERS Safety Report 12524255 (Version 3)
Quarter: 2021Q4

REPORT INFORMATION
  Report Type: Spontaneous
  Country: CA (occurrence: CA)
  Receive Date: 20160704
  Receipt Date: 20211112
  Transmission Date: 20220303
  Serious: Yes (Other)
  Sender: FDA-Public Use
  Company Number: CA-AUROBINDO-AUR-APL-2016-08644

PATIENT
  Age: 45 Year
  Sex: Male

DRUGS (9)
  1. QUETIAPINE [Suspect]
     Active Substance: QUETIAPINE
     Indication: Product used for unknown indication
     Dosage: 700 MILLIGRAM, ONCE A DAY
     Route: 065
  2. OLANZAPINE [Suspect]
     Active Substance: OLANZAPINE
     Indication: Psychotic disorder
     Dosage: UNK
     Route: 065
  3. LEVOMEPROMAZINE [Suspect]
     Active Substance: LEVOMEPROMAZINE
     Indication: Psychotic disorder
     Dosage: UNK
     Route: 065
  4. CLOZAPINE [Suspect]
     Active Substance: CLOZAPINE
     Indication: Product used for unknown indication
     Dosage: 150 MILLIGRAM, ONCE A DAY
  5. CLOZAPINE [Suspect]
     Active Substance: CLOZAPINE
     Dosage: 125 MILLIGRAM, ONCE A DAY
     Route: 065
  6. PENFLURIDOL [Suspect]
     Active Substance: PENFLURIDOL
     Indication: Psychotic disorder
     Dosage: UNK
     Route: 065
  7. PIMOZIDE [Suspect]
     Active Substance: PIMOZIDE
     Indication: Psychotic disorder
     Dosage: UNK
     Route: 065
  8. RISPERIDONE [Suspect]
     Active Substance: RISPERIDONE
     Indication: Psychotic disorder
     Dosage: UNK
     Route: 065
  9. ARIPIPRAZOLE [Concomitant]
     Active Substance: ARIPIPRAZOLE
     Indication: Product used for unknown indication
     Dosage: UNK
     Route: 065

REACTIONS (14)
  - Parkinsonism [Unknown]
  - Myoclonus [Not Recovered/Not Resolved]
  - Cognitive disorder [Recovered/Resolved]
  - Oculogyric crisis [Unknown]
  - Akathisia [Unknown]
  - Resting tremor [Not Recovered/Not Resolved]
  - Seizure [Unknown]
  - Fall [Unknown]
  - Cogwheel rigidity [Not Recovered/Not Resolved]
  - Agitation [Unknown]
  - Adjustment disorder [Recovered/Resolved]
  - Screaming [Unknown]
  - Eye movement disorder [Unknown]
  - Drug ineffective [Unknown]
